FAERS Safety Report 16416435 (Version 1)
Quarter: 2019Q2

REPORT INFORMATION
  Report Type: Spontaneous
  Country: US (occurrence: US)
  Receive Date: 20190611
  Receipt Date: 20190611
  Transmission Date: 20190711
  Serious: No
  Sender: FDA-Public Use
  Company Number: US-FRESENIUS KABI-FK201906265

PATIENT
  Age: 77 Year
  Sex: Female

DRUGS (4)
  1. MORPHINE SULFATE INJECTION (MANUFACTURER UNKNOWN) [Suspect]
     Active Substance: MORPHINE SULFATE
     Indication: PAIN IN EXTREMITY
  2. MORPHINE SULFATE INJECTION (MANUFACTURER UNKNOWN) [Suspect]
     Active Substance: MORPHINE SULFATE
     Indication: PAIN IN EXTREMITY
     Dosage: UNKNOWN
     Route: 065
  3. DILAUDID [Suspect]
     Active Substance: HYDROMORPHONE HYDROCHLORIDE
     Indication: PAIN IN EXTREMITY
     Dosage: UNKNOWN
     Route: 065
  4. DILAUDID [Suspect]
     Active Substance: HYDROMORPHONE HYDROCHLORIDE
     Indication: PAIN IN EXTREMITY

REACTIONS (1)
  - Drug ineffective [Unknown]
